FAERS Safety Report 16376561 (Version 1)
Quarter: 2019Q2

REPORT INFORMATION
  Report Type: Spontaneous
  Country: FR (occurrence: FR)
  Receive Date: 20190531
  Receipt Date: 20190531
  Transmission Date: 20190711
  Serious: Yes (Other)
  Sender: FDA-Public Use
  Company Number: FR-BAUSCH-BL-2019-015555

PATIENT
  Sex: Female

DRUGS (1)
  1. METFORMINE NOS [Suspect]
     Active Substance: METFORMIN HYDROCHLORIDE
     Indication: DIABETES MELLITUS
     Route: 065

REACTIONS (6)
  - Seizure [Unknown]
  - Treatment noncompliance [Unknown]
  - Diabetic metabolic decompensation [Unknown]
  - Abdominal pain upper [Unknown]
  - Skin discolouration [Unknown]
  - Vomiting [Unknown]
